FAERS Safety Report 13393431 (Version 1)
Quarter: 2017Q1

REPORT INFORMATION
  Report Type: Spontaneous
  Country: US (occurrence: US)
  Receive Date: 20170331
  Receipt Date: 20170331
  Transmission Date: 20170429
  Serious: Yes (Hospitalization)
  Sender: FDA-Public Use
  Company Number: US-ELI_LILLY_AND_COMPANY-US201703010530

PATIENT
  Sex: Female

DRUGS (1)
  1. HUMULIN R U-500 [Suspect]
     Active Substance: INSULIN HUMAN
     Indication: PRODUCT USED FOR UNKNOWN INDICATION
     Dosage: UNK, UNKNOWN
     Route: 065
     Dates: start: 2016

REACTIONS (10)
  - Drug dispensing error [Recovered/Resolved]
  - Mobility decreased [Recovering/Resolving]
  - Decreased appetite [Recovered/Resolved]
  - Fall [Recovering/Resolving]
  - Blood glucose decreased [Recovered/Resolved]
  - Joint injury [Recovering/Resolving]
  - Head injury [Recovered/Resolved]
  - Blood glucose increased [Unknown]
  - Wrong technique in product usage process [Recovered/Resolved]
  - Knee deformity [Recovering/Resolving]

NARRATIVE: CASE EVENT DATE: 2016
